FAERS Safety Report 6789615-3 (Version None)
Quarter: 2010Q2

REPORT INFORMATION
  Report Type: 
  Country: None (occurrence: None)
  Receive Date: 20100624
  Receipt Date: 20100614
  Transmission Date: 20101027
  Serious: No
  Sender: FDA-Public Use
  Company Number: US-BIOGENIDEC-2010BI020606

PATIENT
  Sex: Male

DRUGS (1)
  1. TYSABRI [Suspect]
     Indication: MULTIPLE SCLEROSIS
     Route: 042

REACTIONS (7)
  - ASTHENIA [None]
  - FACE INJURY [None]
  - FALL [None]
  - FATIGUE [None]
  - PAIN [None]
  - RIB FRACTURE [None]
  - SINUS DISORDER [None]
